FAERS Safety Report 7516172-6 (Version None)
Quarter: 2011Q2

REPORT INFORMATION
  Report Type: 
  Country: None (occurrence: None)
  Receive Date: 20110520
  Receipt Date: 20110511
  Transmission Date: 20111010
  Serious: Yes (Hospitalization)
  Sender: FDA-Public Use
  Company Number: UTC-007067

PATIENT
  Age: 53 Year
  Sex: Female

DRUGS (1)
  1. REMODULIN [Suspect]
     Indication: PULMONARY ARTERIAL HYPERTENSION
     Dosage: 28.8 UG/KG(0..02 UG/KG, 1  IN 1 MIN), INTRAVENOUS
     Route: 042
     Dates: start: 20110301

REACTIONS (2)
  - PRESYNCOPE [None]
  - OEDEMA PERIPHERAL [None]
